FAERS Safety Report 6355686-1 (Version None)
Quarter: 2009Q3

REPORT INFORMATION
  Report Type: 
  Country: None (occurrence: None)
  Receive Date: 20090910
  Receipt Date: 20090828
  Transmission Date: 20100115
  Serious: Yes (Other)
  Sender: FDA-Public Use
  Company Number: 2009AL005709

PATIENT
  Age: 26 Year
  Sex: Female

DRUGS (2)
  1. RANITIDINE [Suspect]
     Indication: PROPHYLAXIS
     Dosage: 50MG;IV
     Route: 042
     Dates: start: 20090806, end: 20090806
  2. FERROUS SULFATE TAB [Concomitant]

REACTIONS (4)
  - DYSPNOEA [None]
  - FLUSHING [None]
  - SWELLING [None]
  - VOCAL CORD DISORDER [None]
